FAERS Safety Report 6345277-0 (Version None)
Quarter: 2009Q3

REPORT INFORMATION
  Report Type: 
  Country: None (occurrence: None)
  Receive Date: 20090909
  Receipt Date: 20090903
  Transmission Date: 20100115
  Serious: Yes (Death)
  Sender: FDA-Public Use
  Company Number: PHEH2009US10439

PATIENT
  Sex: Female
  Weight: 48.98 kg

DRUGS (1)
  1. EXJADE [Suspect]
     Indication: NEOPLASM
     Dosage: 1000 MG DAILY
     Route: 048
     Dates: start: 20090427

REACTIONS (1)
  - DEATH [None]
